FAERS Safety Report 16206049 (Version 1)
Quarter: 2019Q2

REPORT INFORMATION
  Report Type: Spontaneous
  Country: US (occurrence: US)
  Receive Date: 20190312
  Receipt Date: 20190312
  Transmission Date: 20190711
  Serious: No
  Sender: FDA-Public Use
  Company Number: None

PATIENT
  Age: 68 Year
  Sex: Male
  Weight: 74.84 kg

DRUGS (2)
  1. DAILY MULTIVITAMIN [Concomitant]
     Active Substance: VITAMINS
  2. GAVILYTE - N [Suspect]
     Active Substance: POLYETHYLENE GLYCOL 3350\POTASSIUM CHLORIDE\SODIUM BICARBONATE\SODIUM CHLORIDE
     Indication: BOWEL PREPARATION
     Dosage: ?          QUANTITY:TO MAKE 4 LITERS;?
     Route: 048
     Dates: start: 20190224, end: 20190224

REACTIONS (4)
  - Vomiting [None]
  - Chills [None]
  - Tremor [None]
  - Flushing [None]

NARRATIVE: CASE EVENT DATE: 20190224
